FAERS Safety Report 9051054 (Version 2)
Quarter: 2013Q1

REPORT INFORMATION
  Report Type: Report from Study
  Country: US (occurrence: US)
  Receive Date: 20130131
  Receipt Date: 20130131
  Transmission Date: 20140127
  Serious: Yes (Hospitalization, Other)
  Sender: FDA-Public Use
  Company Number: US-BRISTOL-MYERS SQUIBB COMPANY-17250093

PATIENT
  Age: 84 Year
  Sex: Male

DRUGS (9)
  1. BLINDED: SAXAGLIPTIN [Suspect]
     Indication: TYPE 2 DIABETES MELLITUS
     Dates: start: 20110427
  2. METFORMIN HCL [Suspect]
     Indication: TYPE 2 DIABETES MELLITUS
  3. NOVOLOG [Suspect]
     Indication: TYPE 2 DIABETES MELLITUS
     Dosage: 1DF: 8 IU/UNITS
     Dates: start: 20121003
  4. BLINDED: PLACEBO [Suspect]
     Indication: TYPE 2 DIABETES MELLITUS
     Dates: start: 20110427
  5. COUMADIN [Suspect]
  6. ASPIRIN [Suspect]
  7. EZETIMIBE [Concomitant]
  8. NIACIN [Concomitant]
  9. NITRATES [Concomitant]

REACTIONS (3)
  - Urosepsis [Recovered/Resolved with Sequelae]
  - Osteoarthritis [Not Recovered/Not Resolved]
  - Gastritis haemorrhagic [Recovering/Resolving]
